FAERS Safety Report 15923472 (Version 1)
Quarter: 2019Q1

REPORT INFORMATION
  Report Type: Spontaneous
  Country: DE (occurrence: DE)
  Receive Date: 20190206
  Receipt Date: 20190206
  Transmission Date: 20190417
  Serious: Yes (Hospitalization)
  Sender: FDA-Public Use
  Company Number: DE-ACCORD-105794

PATIENT
  Age: 67 Year
  Sex: Male

DRUGS (12)
  1. OXYCODONE/OXYCODONE HYDROCHLORIDE/OXYCODONE PECTINATE/OXYCODONE TEREPHTHALATE [Concomitant]
     Dosage: 20 MG, 1-0-1-0
  2. TAMSULOSIN/TAMSULOSIN HYDROCHLORIDE [Concomitant]
     Dosage: 0.4 MG, 0-0-1-0
  3. VINORELBINE [Suspect]
     Active Substance: VINORELBINE\VINORELBINE TARTRATE
     Indication: PRODUCT USED FOR UNKNOWN INDICATION
     Dosage: NK MG, NK
  4. SIMVASTATIN. [Concomitant]
     Active Substance: SIMVASTATIN
     Dosage: 40 MG, 0-0-1-0
  5. MACROGOL/MACROGOL STEARATE [Concomitant]
     Dosage: NK MG, 1-0-0-0
  6. METAMIZOLE SODIUM [Concomitant]
     Active Substance: METAMIZOLE SODIUM
     Dosage: NK MG, 30 GTT IF NECESSARY, DROPS
  7. HCT [Concomitant]
     Active Substance: HYDROCHLOROTHIAZIDE
     Dosage: 25 MG, 1-0-0-0
  8. RAMIPRIL. [Concomitant]
     Active Substance: RAMIPRIL
     Dosage: 5 MG, 1-0-0-0
  9. METOPROLOL. [Suspect]
     Active Substance: METOPROLOL
     Indication: PRODUCT USED FOR UNKNOWN INDICATION
     Dosage: 23.75 MG, 1-0-1-0
  10. ELIQUIS [Concomitant]
     Active Substance: APIXABAN
     Dosage: 5 MG, 1-0-1-0
  11. PANTOPRAZOLE [Concomitant]
     Active Substance: PANTOPRAZOLE
     Dosage: 40 MG, 0-0-1-0
  12. CISPLATIN. [Suspect]
     Active Substance: CISPLATIN
     Indication: PRODUCT USED FOR UNKNOWN INDICATION
     Dosage: NK MG, NK

REACTIONS (1)
  - Dyspnoea [Unknown]

NARRATIVE: CASE EVENT DATE: 20170131
